FAERS Safety Report 10652840 (Version 4)
Quarter: 2015Q4

REPORT INFORMATION
  Report Type: Spontaneous
  Country: JP (occurrence: JP)
  Receive Date: 20141215
  Receipt Date: 20151204
  Transmission Date: 20160304
  Serious: Yes (Hospitalization)
  Sender: FDA-Public Use
  Company Number: PHHY2014JP161637

PATIENT
  Age: 65 Year
  Sex: Female
  Weight: 44 kg

DRUGS (4)
  1. AROMASIN [Concomitant]
     Active Substance: EXEMESTANE
     Indication: BREAST CANCER
     Dosage: 25 MG, QD
     Route: 048
     Dates: start: 20140701
  2. ACTONEL [Concomitant]
     Active Substance: RISEDRONATE SODIUM
     Indication: RENAL SALT-WASTING SYNDROME
     Dosage: 75 MG, QMO
     Route: 048
     Dates: start: 20140902
  3. AFINITOR [Suspect]
     Active Substance: EVEROLIMUS
     Indication: BREAST CANCER METASTATIC
     Dosage: 10 MG, QD
     Route: 048
     Dates: start: 20140701
  4. AFINITOR [Suspect]
     Active Substance: EVEROLIMUS
     Dosage: 10 MG, QD
     Route: 048
     Dates: start: 20141126

REACTIONS (3)
  - Pneumothorax [Recovered/Resolved]
  - Dyspnoea [Unknown]
  - Pneumothorax [Recovered/Resolved]

NARRATIVE: CASE EVENT DATE: 20141109
